FAERS Safety Report 19710990 (Version 1)
Quarter: 2021Q3

REPORT INFORMATION
  Report Type: Spontaneous
  Country: IT (occurrence: IT)
  Receive Date: 20210816
  Receipt Date: 20210816
  Transmission Date: 20211014
  Serious: Yes (Other)
  Sender: FDA-Public Use
  Company Number: IT-CORDEN PHARMA LATINA S.P.A.-IT-2021COR000010

PATIENT
  Age: 12 Year
  Sex: Male

DRUGS (2)
  1. VINCRISTINE [Suspect]
     Active Substance: VINCRISTINE
     Indication: PROPHYLACTIC CHEMOTHERAPY
     Dosage: UNK
     Route: 065
  2. LOMUSTINE. [Suspect]
     Active Substance: LOMUSTINE
     Indication: PROPHYLACTIC CHEMOTHERAPY
     Dosage: UNK
     Route: 065

REACTIONS (2)
  - Toxicity to various agents [Unknown]
  - Wernicke^s encephalopathy [Recovering/Resolving]
